FAERS Safety Report 17479879 (Version 2)
Quarter: 2020Q3

REPORT INFORMATION
  Report Type: Report from Study
  Country: BR (occurrence: BR)
  Receive Date: 20200228
  Receipt Date: 20200312
  Transmission Date: 20201104
  Serious: Yes (Life-Threatening, Hospitalization, Disabling)
  Sender: FDA-Public Use
  Company Number: BR-DSJP-DSU-2020-107230

PATIENT

DRUGS (5)
  1. TRASTUZUMAB DERUXTECAN. [Suspect]
     Active Substance: TRASTUZUMAB DERUXTECAN
     Dosage: 5.4 MG/KG, ONCE EVERY 3 WK
     Route: 042
     Dates: start: 20200219, end: 20200219
  2. METHADONE [Concomitant]
     Active Substance: METHADONE HYDROCHLORIDE
     Indication: BONE PAIN
     Dosage: 5 MG, TID
     Route: 048
     Dates: start: 201912
  3. TRASTUZUMAB DERUXTECAN. [Suspect]
     Active Substance: TRASTUZUMAB DERUXTECAN
     Indication: BREAST CANCER METASTATIC
  4. MORPHINE [Concomitant]
     Active Substance: MORPHINE
     Indication: BONE PAIN
     Dosage: 20 DROP, QID
     Route: 048
     Dates: start: 20200115
  5. DIPYRONE [Concomitant]
     Active Substance: DIPYRONE
     Indication: BONE PAIN
     Dosage: 500 MG, TID
     Route: 048
     Dates: start: 201912

REACTIONS (1)
  - Febrile neutropenia [Recovered/Resolved]

NARRATIVE: CASE EVENT DATE: 20200224
